FAERS Safety Report 6163742-6 (Version None)
Quarter: 2009Q2

REPORT INFORMATION
  Report Type: 
  Country: None (occurrence: None)
  Receive Date: 20090420
  Receipt Date: 20090408
  Transmission Date: 20091009
  Serious: Yes (Other)
  Sender: FDA-Public Use
  Company Number: 2009US000823

PATIENT
  Age: 69 Year
  Sex: Male

DRUGS (10)
  1. LEXISCAN [Suspect]
     Indication: SCAN MYOCARDIAL PERFUSION
     Dosage: 0.4 MG, TOTAL DOSE, IV NOS
     Route: 042
     Dates: start: 20090304, end: 20090304
  2. WARFARIN SODIUM [Concomitant]
  3. CARDIZEM [Concomitant]
  4. METOPROLOL TARTRATE [Concomitant]
  5. TRICOR [Concomitant]
  6. ZETIA [Concomitant]
  7. SIMVASTATIN [Concomitant]
  8. HYDROCHLOROTHIAZIDE [Concomitant]
  9. ASPIRIN [Concomitant]
  10. MULTIVITAMIN [Concomitant]

REACTIONS (1)
  - HYPERTENSION [None]
